FAERS Safety Report 10730827 (Version 1)
Quarter: 2015Q1

REPORT INFORMATION
  Report Type: Spontaneous
  Country: CN (occurrence: CN)
  Receive Date: 20150122
  Receipt Date: 20150122
  Transmission Date: 20150721
  Serious: Yes (Hospitalization, Other)
  Sender: FDA-Public Use
  Company Number: CN-BAYER-2015-008345

PATIENT
  Age: 79 Year
  Sex: Male
  Weight: 55 kg

DRUGS (2)
  1. BETALOC [Suspect]
     Active Substance: METOPROLOL TARTRATE
     Indication: TYPE 2 DIABETES MELLITUS
     Dosage: 25 MG, BID
     Route: 048
     Dates: start: 20140401, end: 20140503
  2. GLUCOBAY [Suspect]
     Active Substance: ACARBOSE
     Indication: TYPE 2 DIABETES MELLITUS
     Dosage: 50 MG, TID
     Route: 048
     Dates: start: 20140401, end: 20140503

REACTIONS (1)
  - Hypoglycaemia [Recovered/Resolved]

NARRATIVE: CASE EVENT DATE: 20140503
